FAERS Safety Report 23947841 (Version 1)
Quarter: 2024Q2

REPORT INFORMATION
  Report Type: Spontaneous
  Country: FR (occurrence: FR)
  Receive Date: 20240606
  Receipt Date: 20240606
  Transmission Date: 20240716
  Serious: Yes (Other)
  Sender: FDA-Public Use
  Company Number: FR-BRISTOL-MYERS SQUIBB COMPANY-2024-088776

PATIENT
  Age: 59 Year
  Sex: Male

DRUGS (2)
  1. REPOTRECTINIB [Suspect]
     Active Substance: REPOTRECTINIB
     Indication: Lung adenocarcinoma
     Dates: start: 20231007
  2. REPOTRECTINIB [Suspect]
     Active Substance: REPOTRECTINIB
     Dates: start: 202312

REACTIONS (9)
  - Dizziness [Unknown]
  - Anaesthesia [Unknown]
  - Paraesthesia [Unknown]
  - Hyperaesthesia [Unknown]
  - Neuropathy peripheral [Unknown]
  - Neurotoxicity [Recovered/Resolved]
  - Middle insomnia [Unknown]
  - Cell death [Unknown]
  - Erysipelas [Unknown]

NARRATIVE: CASE EVENT DATE: 20231001
